FAERS Safety Report 5636039-8 (Version None)
Quarter: 2008Q1

REPORT INFORMATION
  Report Type: 
  Country: None (occurrence: None)
  Receive Date: 20080220
  Receipt Date: 20080220
  Transmission Date: 20080703
  Serious: No
  Sender: FDA-Public Use
  Company Number: None

PATIENT
  Sex: Male
  Weight: 75.7507 kg

DRUGS (1)
  1. SIMVASTATIN [Suspect]
     Indication: BLOOD CHOLESTEROL
     Dates: start: 20071210, end: 20080204

REACTIONS (5)
  - DRY SKIN [None]
  - PROCTITIS HERPES [None]
  - RASH [None]
  - RASH PRURITIC [None]
  - SKIN EXFOLIATION [None]
